FAERS Safety Report 5017851-5 (Version None)
Quarter: 2006Q2

REPORT INFORMATION
  Report Type: 
  Country: None (occurrence: None)
  Receive Date: 20060605
  Receipt Date: 20060522
  Transmission Date: 20061013
  Serious: Yes (Death, Other)
  Sender: FDA-Public Use
  Company Number: PHRM2006FR01650

PATIENT
  Age: 75 Year
  Sex: Female

DRUGS (2)
  1. ZOMETA [Suspect]
     Indication: MULTIPLE MYELOMA
     Route: 042
  2. AREDIA [Suspect]
     Indication: MULTIPLE MYELOMA
     Route: 042

REACTIONS (4)
  - DENTAL CARE [None]
  - MALIGNANT NEOPLASM PROGRESSION [None]
  - MULTIPLE MYELOMA [None]
  - OSTEONECROSIS [None]
